FAERS Safety Report 5551490-2 (Version None)
Quarter: 2007Q4

REPORT INFORMATION
  Report Type: 
  Country: None (occurrence: None)
  Receive Date: 20071212
  Receipt Date: 20071130
  Transmission Date: 20080405
  Serious: Yes (Other)
  Sender: FDA-Public Use
  Company Number: US-PFIZER INC-2007101963

PATIENT
  Sex: Female
  Weight: 104.54 kg

DRUGS (10)
  1. CELEBREX [Suspect]
     Indication: ARTHRITIS
     Route: 048
  2. LANOXIN [Concomitant]
  3. COZAAR [Concomitant]
  4. LASIX [Concomitant]
  5. PROZAC [Concomitant]
  6. COREG [Concomitant]
  7. ALDACTONE [Concomitant]
  8. LIPITOR [Concomitant]
  9. ZETIA [Concomitant]
  10. ZOFRAN [Concomitant]
     Route: 048

REACTIONS (2)
  - KELOID SCAR [None]
  - PRURITUS [None]
